FAERS Safety Report 5586256-0 (Version None)
Quarter: 2007Q4

REPORT INFORMATION
  Report Type: 
  Country: None (occurrence: None)
  Receive Date: 20071212
  Receipt Date: 20070514
  Transmission Date: 20080405
  Serious: Yes (Other)
  Sender: FDA-Public Use
  Company Number: USA-2007-0027352

PATIENT
  Age: 69 Year
  Sex: Female

DRUGS (5)
  1. OXYCONTIN [Suspect]
     Indication: FIBROMYALGIA
     Dosage: 40 MG, QID
  2. LORTAB [Concomitant]
  3. AMBIEN [Concomitant]
  4. GABAPENTIN [Concomitant]
  5. ANALGESICS [Concomitant]

REACTIONS (9)
  - AMNESIA [None]
  - DECREASED APPETITE [None]
  - ENURESIS [None]
  - EXCORIATION [None]
  - FALL [None]
  - HYPOTONIA [None]
  - OEDEMA PERIPHERAL [None]
  - SOMNOLENCE [None]
  - SYNCOPE [None]
